FAERS Safety Report 25803197 (Version 1)
Quarter: 2025Q3

REPORT INFORMATION
  Report Type: Spontaneous
  Country: ZA (occurrence: ZA)
  Receive Date: 20250915
  Receipt Date: 20250915
  Transmission Date: 20251020
  Serious: Yes (Other)
  Sender: FERRING
  Company Number: ZA-FERRINGPH-2025FE05238

PATIENT

DRUGS (1)
  1. DINOPROSTONE [Suspect]
     Active Substance: DINOPROSTONE
     Indication: Induction of cervix ripening
     Route: 065

REACTIONS (2)
  - Premature separation of placenta [Unknown]
  - Drug ineffective [Unknown]
